FAERS Safety Report 6202727-8 (Version None)
Quarter: 2009Q2

REPORT INFORMATION
  Report Type: 
  Country: None (occurrence: None)
  Receive Date: 20090526
  Receipt Date: 20090515
  Transmission Date: 20091009
  Serious: Yes (Other)
  Sender: FDA-Public Use
  Company Number: PHHY2009MT18809

PATIENT
  Age: 75 Year
  Sex: Female

DRUGS (2)
  1. EXELON [Suspect]
     Indication: DEMENTIA
     Dosage: ONE 4.6 MG/24 HR PATCH
     Route: 062
     Dates: start: 20090406, end: 20090420
  2. PAROXETINE HCL [Concomitant]

REACTIONS (3)
  - ABNORMAL BEHAVIOUR [None]
  - MEMORY IMPAIRMENT [None]
  - PARANOIA [None]
